FAERS Safety Report 5075258-9 (Version None)
Quarter: 2006Q3

REPORT INFORMATION
  Report Type: 
  Country: None (occurrence: None)
  Receive Date: 20060804
  Receipt Date: 20060720
  Transmission Date: 20061208
  Serious: Yes (Hospitalization)
  Sender: FDA-Public Use
  Company Number: SPVI-2006-00234

PATIENT
  Age: 31 Year
  Sex: Female

DRUGS (3)
  1. ADDERALL 10 [Suspect]
  2. ORAL CONTRACEPTIVE NOS [Concomitant]
  3. LEVOTHYROXINE SODIUM [Concomitant]

REACTIONS (8)
  - ACUTE MYOCARDIAL INFARCTION [None]
  - CORONARY ARTERY ANEURYSM [None]
  - CORONARY ARTERY OCCLUSION [None]
  - CORONARY ARTERY PERFORATION [None]
  - CORONARY ARTERY THROMBOSIS [None]
  - DRUG ABUSER [None]
  - EXTRAVASATION [None]
  - VENTRICULAR HYPOKINESIA [None]
